FAERS Safety Report 21044679 (Version 2)
Quarter: 2022Q3

REPORT INFORMATION
  Report Type: Spontaneous
  Country: JP (occurrence: JP)
  Receive Date: 20220705
  Receipt Date: 20220728
  Transmission Date: 20221027
  Serious: Yes (Hospitalization)
  Sender: FDA-Public Use
  Company Number: JP-TEVA-2022-JP-2052393

PATIENT
  Age: 41 Year
  Sex: Female

DRUGS (6)
  1. PREDNISOLONE [Suspect]
     Active Substance: PREDNISOLONE
     Indication: Lupus nephritis
     Dosage: 12.5 MILLIGRAM DAILY;
     Route: 065
  2. TACROLIMUS [Suspect]
     Active Substance: TACROLIMUS
     Indication: Lupus nephritis
     Dosage: 3 MILLIGRAM DAILY;
     Route: 065
  3. SULFAMETHOXAZOLE\TRIMETHOPRIM [Concomitant]
     Active Substance: SULFAMETHOXAZOLE\TRIMETHOPRIM
     Indication: Pneumocystis jirovecii pneumonia
     Dosage: 1 DOSAGE FORMS DAILY; ONE SINGLE-STRENGTH TABLET, DAILY
     Route: 065
  4. SULFAMETHOXAZOLE\TRIMETHOPRIM [Concomitant]
     Active Substance: SULFAMETHOXAZOLE\TRIMETHOPRIM
     Indication: Prophylaxis
  5. DIENOGEST [Concomitant]
     Active Substance: DIENOGEST
     Indication: Adenomyosis
     Route: 065
  6. DIENOGEST [Concomitant]
     Active Substance: DIENOGEST
     Indication: Dysmenorrhoea

REACTIONS (2)
  - Arthritis infective [Recovered/Resolved]
  - Bacterial infection [Recovered/Resolved]
